FAERS Safety Report 24906159 (Version 3)
Quarter: 2025Q3

REPORT INFORMATION
  Report Type: Report from Study
  Country: JP (occurrence: JP)
  Receive Date: 20250130
  Receipt Date: 20250904
  Transmission Date: 20251021
  Serious: Yes (Death, Life-Threatening)
  Sender: ALEXION PHARMACEUTICALS
  Company Number: JP-ASTRAZENECA-250004509_064320_P_1

PATIENT
  Age: 73 Year
  Sex: Male

DRUGS (7)
  1. ANDEXANET ALFA [Suspect]
     Active Substance: ANDEXANET ALFA
     Indication: Subarachnoid haemorrhage
     Dates: start: 20220929, end: 20220929
  2. ANDEXANET ALFA [Suspect]
     Active Substance: ANDEXANET ALFA
     Indication: Subdural haematoma
  3. ELIQUIS [Concomitant]
     Active Substance: APIXABAN
     Indication: Ischaemic stroke
     Route: 065
  4. CEFTRIAXONE SODIUM [Concomitant]
     Active Substance: CEFTRIAXONE SODIUM
     Indication: Prophylaxis
     Route: 065
     Dates: start: 20220929, end: 20221003
  5. OMEPRAZOLE [Concomitant]
     Active Substance: OMEPRAZOLE
     Indication: Prophylaxis
     Route: 065
     Dates: start: 20220929, end: 20221003
  6. LEVETIRACETAM [Concomitant]
     Active Substance: LEVETIRACETAM
     Indication: Prophylaxis
     Route: 065
     Dates: start: 20220929, end: 20221003
  7. PROPOFOL [Concomitant]
     Active Substance: PROPOFOL
     Indication: Sedation
     Route: 065

REACTIONS (8)
  - Brain contusion [Fatal]
  - Brain oedema [Fatal]
  - Brain herniation [Fatal]
  - Respiratory failure [Fatal]
  - Sedation [Fatal]
  - Subdural haemorrhage [Recovering/Resolving]
  - Subarachnoid haemorrhage [Recovering/Resolving]
  - Hypotension [Not Recovered/Not Resolved]

NARRATIVE: CASE EVENT DATE: 20220929
